FAERS Safety Report 13334986 (Version 1)
Quarter: 2017Q1

REPORT INFORMATION
  Report Type: Spontaneous
  Country: DE (occurrence: DE)
  Receive Date: 20170315
  Receipt Date: 20170315
  Transmission Date: 20170428
  Serious: Yes (Hospitalization)
  Sender: FDA-Public Use
  Company Number: DE-BAXTER-2017BAX001958

PATIENT
  Age: 59 Year
  Sex: Male
  Weight: 45.3 kg

DRUGS (30)
  1. CALCET [Concomitant]
     Indication: PRODUCT USED FOR UNKNOWN INDICATION
     Dosage: 200 FTA, 0-1-1-0-0
     Route: 065
     Dates: start: 20170118
  2. DREISAVIT N [Concomitant]
     Indication: PRODUCT USED FOR UNKNOWN INDICATION
     Dosage: 100 FTA, 1-0-0-0-0
     Route: 065
     Dates: start: 20170215
  3. PHYSIONEAL 40 GLUCOSE 2,27 % W/V 22,7 MG/ML PERITONEALDIALYSELOSUNG [Suspect]
     Active Substance: CALCIUM CHLORIDE\DEXTROSE\MAGNESIUM CHLORIDE\SODIUM CHLORIDE SOLUTION
     Route: 033
     Dates: start: 20170110
  4. LAXOBERAL [Concomitant]
     Active Substance: SODIUM PICOSULFATE
     Indication: PRODUCT USED FOR UNKNOWN INDICATION
     Dosage: LAXATIVE DROP 15 TEI (N1)
     Route: 065
     Dates: start: 20170118
  5. PHYSIONEAL 40 GLUCOSE 2,27 % W/V 22,7 MG/ML PERITONEALDIALYSELOSUNG [Suspect]
     Active Substance: CALCIUM CHLORIDE\DEXTROSE\MAGNESIUM CHLORIDE\SODIUM CHLORIDE SOLUTION
     Indication: PERITONEAL DIALYSIS
     Route: 033
     Dates: start: 20161220
  6. PHYSIONEAL 40 GLUCOSE 2,27 % W/V 22,7 MG/ML PERITONEALDIALYSELOSUNG [Suspect]
     Active Substance: CALCIUM CHLORIDE\DEXTROSE\MAGNESIUM CHLORIDE\SODIUM CHLORIDE SOLUTION
     Route: 033
     Dates: start: 20170109
  7. ARANESP [Concomitant]
     Active Substance: DARBEPOETIN ALFA
     Indication: PRODUCT USED FOR UNKNOWN INDICATION
     Dosage: 1-0-0-0-0; FS, 4 FER (N2)
     Route: 065
     Dates: start: 20161230
  8. SIMVASTIN [Concomitant]
     Active Substance: SIMVASTATIN
     Indication: DIURETIC THERAPY
     Dosage: 1A PHARMA, 100 FTA (N3)
     Route: 065
     Dates: start: 20170215
  9. EXTRANEAL [Suspect]
     Active Substance: CALCIUM CHLORIDE\ICODEXTRIN\MAGNESIUM CHLORIDE\SODIUM CHLORIDE\SODIUM LACTATE
     Indication: PERITONEAL DIALYSIS
     Route: 033
     Dates: start: 20161220
  10. PHYSIONEAL 40 GLUCOSE 1,36 % W/V 13,6 MG/ML PERITONEALDIALYSELOSUNG [Suspect]
     Active Substance: CALCIUM CHLORIDE\MAGNESIUM CHLORIDE\SODIUM CHLORIDE\SODIUM LACTATE
     Indication: PERITONEAL DIALYSIS
     Route: 033
     Dates: start: 20161212
  11. PHYSIONEAL 40 GLUCOSE 2,27 % W/V 22,7 MG/ML PERITONEALDIALYSELOSUNG [Suspect]
     Active Substance: CALCIUM CHLORIDE\DEXTROSE\MAGNESIUM CHLORIDE\SODIUM CHLORIDE SOLUTION
     Indication: PERITONEAL DIALYSIS
     Route: 033
     Dates: start: 20161231, end: 20170108
  12. PHYSIONEAL 40 GLUCOSE 2,27 % W/V 22,7 MG/ML PERITONEALDIALYSELOSUNG [Suspect]
     Active Substance: CALCIUM CHLORIDE\DEXTROSE\MAGNESIUM CHLORIDE\SODIUM CHLORIDE SOLUTION
     Route: 033
     Dates: start: 20170114
  13. EUTHYROX [Concomitant]
     Active Substance: LEVOTHYROXINE SODIUM
     Indication: PRODUCT USED FOR UNKNOWN INDICATION
     Dosage: 100 TAB 8N3, 1-0-0-0-0
     Route: 065
     Dates: start: 20161230
  14. NOVAMINSULFON [Concomitant]
     Active Substance: METAMIZOLE
     Indication: PRODUCT USED FOR UNKNOWN INDICATION
     Dosage: 15-0-0-0-0; 1A PHARM TRO, 100 TRO (N3)
     Route: 065
     Dates: start: 20170206
  15. EXTRANEAL [Suspect]
     Active Substance: CALCIUM CHLORIDE\ICODEXTRIN\MAGNESIUM CHLORIDE\SODIUM CHLORIDE\SODIUM LACTATE
     Route: 033
     Dates: start: 20170113
  16. GODAMED [Concomitant]
     Active Substance: ASPIRIN
     Indication: PRODUCT USED FOR UNKNOWN INDICATION
     Dosage: 100 TAH 100 TAB; 1-0-0-0-0
     Route: 065
     Dates: start: 20161223
  17. FRESUBIN ENERGY FIBER VAN [Concomitant]
     Indication: PRODUCT USED FOR UNKNOWN INDICATION
     Dosage: 1-0-1-0-0; 6X4X200 LOE
     Route: 065
     Dates: start: 20170206
  18. PHYSIONEAL 40 GLUCOSE 1,36 % W/V 13,6 MG/ML PERITONEALDIALYSELOSUNG [Suspect]
     Active Substance: CALCIUM CHLORIDE\MAGNESIUM CHLORIDE\SODIUM CHLORIDE\SODIUM LACTATE
     Indication: PERITONEAL DIALYSIS
     Route: 033
     Dates: start: 20161220
  19. PHYSIONEAL 40 GLUCOSE 2,27 % W/V 22,7 MG/ML PERITONEALDIALYSELOSUNG [Suspect]
     Active Substance: CALCIUM CHLORIDE\DEXTROSE\MAGNESIUM CHLORIDE\SODIUM CHLORIDE SOLUTION
     Route: 033
     Dates: start: 20170113
  20. PHYSIONEAL 40 GLUCOSE 2,27 % W/V 22,7 MG/ML PERITONEALDIALYSELOSUNG [Suspect]
     Active Substance: CALCIUM CHLORIDE\DEXTROSE\MAGNESIUM CHLORIDE\SODIUM CHLORIDE SOLUTION
     Route: 033
     Dates: start: 20170115
  21. PHYSIONEAL 40 GLUCOSE 2,27 % W/V 22,7 MG/ML PERITONEALDIALYSELOSUNG [Suspect]
     Active Substance: CALCIUM CHLORIDE\DEXTROSE\MAGNESIUM CHLORIDE\SODIUM CHLORIDE SOLUTION
     Indication: PERITONEAL DIALYSIS
     Route: 033
     Dates: start: 20161223
  22. PHYSIONEAL 40 GLUCOSE 2,27 % W/V 22,7 MG/ML PERITONEALDIALYSELOSUNG [Suspect]
     Active Substance: CALCIUM CHLORIDE\DEXTROSE\MAGNESIUM CHLORIDE\SODIUM CHLORIDE SOLUTION
     Route: 033
     Dates: start: 20170111
  23. AQUAPHOR [Concomitant]
     Active Substance: PETROLATUM
     Indication: PRODUCT USED FOR UNKNOWN INDICATION
     Dosage: 20 1A PHARMA 100 TAB (N3)
     Route: 065
     Dates: start: 20170118
  24. TORASEMID [Concomitant]
     Active Substance: TORSEMIDE
     Indication: PRODUCT USED FOR UNKNOWN INDICATION
     Dosage: 1A PHARMA 100 TAB; 1/2-0-0-0-0
     Route: 065
     Dates: start: 20170127
  25. LACTULOSE-SAAR SYRUP [Concomitant]
     Indication: PRODUCT USED FOR UNKNOWN INDICATION
     Dosage: 10-0-10-0-0
     Route: 065
     Dates: start: 20170206
  26. EXTRANEAL [Suspect]
     Active Substance: CALCIUM CHLORIDE\ICODEXTRIN\MAGNESIUM CHLORIDE\SODIUM CHLORIDE\SODIUM LACTATE
     Indication: PERITONEAL DIALYSIS
     Route: 033
     Dates: start: 20161223
  27. EXTRANEAL [Suspect]
     Active Substance: CALCIUM CHLORIDE\ICODEXTRIN\MAGNESIUM CHLORIDE\SODIUM CHLORIDE\SODIUM LACTATE
     Indication: PERITONEAL DIALYSIS
     Route: 033
     Dates: start: 20161231, end: 20170108
  28. PHYSIONEAL 40 GLUCOSE 2,27 % W/V 22,7 MG/ML PERITONEALDIALYSELOSUNG [Suspect]
     Active Substance: CALCIUM CHLORIDE\DEXTROSE\MAGNESIUM CHLORIDE\SODIUM CHLORIDE SOLUTION
     Route: 033
     Dates: start: 20170112
  29. PHYSIONEAL 40 GLUCOSE 2,27 % W/V 22,7 MG/ML PERITONEALDIALYSELOSUNG [Suspect]
     Active Substance: CALCIUM CHLORIDE\DEXTROSE\MAGNESIUM CHLORIDE\SODIUM CHLORIDE SOLUTION
     Route: 033
     Dates: start: 2017
  30. PANTOPRAZOL [Concomitant]
     Active Substance: PANTOPRAZOLE SODIUM
     Indication: PRODUCT USED FOR UNKNOWN INDICATION
     Dosage: 1A PHARMA
     Route: 065
     Dates: start: 20170118

REACTIONS (6)
  - Emphysema [Unknown]
  - Pancytopenia [Recovered/Resolved]
  - General physical health deterioration [Recovered/Resolved]
  - Hypokalaemia [Recovered/Resolved]
  - Rash [Recovered/Resolved]
  - Cachexia [Recovering/Resolving]

NARRATIVE: CASE EVENT DATE: 20170108
